FAERS Safety Report 24743232 (Version 1)
Quarter: 2024Q4

REPORT INFORMATION
  Report Type: Report from Study
  Country: US (occurrence: US)
  Receive Date: 20241217
  Receipt Date: 20241217
  Transmission Date: 20250114
  Serious: Yes (Hospitalization)
  Sender: ROCHE
  Company Number: US-ROCHE-3578172

PATIENT
  Age: 63 Year
  Sex: Female

DRUGS (13)
  1. OCREVUS [Suspect]
     Active Substance: OCRELIZUMAB
     Indication: Secondary progressive multiple sclerosis
     Dosage: THEN 600 MG EVERY 6 MONTH?DATE OF TREATMENT: 30/NOV/2022, 09/MAY/2023, 09/NOV/2023. RECEIVED 600 MG
     Route: 065
     Dates: start: 20221109
  2. OCREVUS [Suspect]
     Active Substance: OCRELIZUMAB
     Dosage: 2O ML , EVERY 6 MONTH
     Route: 065
     Dates: start: 20231109
  3. TOPAMAX [Concomitant]
     Active Substance: TOPIRAMATE
  4. DOXEPIN [Concomitant]
     Active Substance: DOXEPIN
  5. DONEPEZIL [Concomitant]
     Active Substance: DONEPEZIL
  6. TOPIRAMATE [Concomitant]
     Active Substance: TOPIRAMATE
     Route: 048
  7. ZANAFLEX [Concomitant]
     Active Substance: TIZANIDINE HYDROCHLORIDE
  8. DOXEPIN [Concomitant]
     Active Substance: DOXEPIN
     Route: 048
     Dates: start: 20240807
  9. LORAZEPAM [Concomitant]
     Active Substance: LORAZEPAM
     Dates: start: 20240807
  10. OMEPRAZOLE [Concomitant]
     Active Substance: OMEPRAZOLE
  11. BUSPIRONE [Concomitant]
     Active Substance: BUSPIRONE HYDROCHLORIDE
  12. OXYCODONE HYDROCHLORIDE [Concomitant]
     Active Substance: OXYCODONE HYDROCHLORIDE
     Route: 048
  13. FLUTICASONE PROPIONATE [Concomitant]
     Active Substance: FLUTICASONE PROPIONATE

REACTIONS (13)
  - Asthenia [Recovered/Resolved]
  - Pain [Recovered/Resolved]
  - Muscular weakness [Recovered/Resolved]
  - Dysphagia [Recovered/Resolved]
  - Blood potassium decreased [Recovered/Resolved]
  - Dehydration [Recovered/Resolved]
  - Neck pain [Unknown]
  - Back pain [Unknown]
  - Insomnia [Unknown]
  - Fall [Unknown]
  - Anosmia [Unknown]
  - Ageusia [Unknown]
  - Seizure [Unknown]

NARRATIVE: CASE EVENT DATE: 20231201
